FAERS Safety Report 16565701 (Version 1)
Quarter: 2019Q3

REPORT INFORMATION
  Report Type: Spontaneous
  Country: US (occurrence: US)
  Receive Date: 20190712
  Receipt Date: 20190712
  Transmission Date: 20191004
  Serious: No
  Sender: FDA-Public Use
  Company Number: US-PFIZER INC-2019295242

PATIENT
  Age: 45 Year
  Sex: Female
  Weight: 97.98 kg

DRUGS (1)
  1. GABAPENTIN. [Suspect]
     Active Substance: GABAPENTIN
     Indication: NEUROPATHY PERIPHERAL
     Dosage: 300 MG, THREE TIMES A DAY
     Route: 048

REACTIONS (4)
  - Product use in unapproved indication [Unknown]
  - Hypoaesthesia [Unknown]
  - Fall [Unknown]
  - Off label use [Unknown]
